FAERS Safety Report 20421505 (Version 8)
Quarter: 2023Q1

REPORT INFORMATION
  Report Type: Report from Study
  Country: US (occurrence: US)
  Receive Date: 20220203
  Receipt Date: 20230307
  Transmission Date: 20230417
  Serious: Yes (Hospitalization, Other)
  Sender: FDA-Public Use
  Company Number: US-BIOVITRUM-2022US01389

PATIENT
  Age: 38 Year
  Sex: Female

DRUGS (3)
  1. KINERET [Suspect]
     Active Substance: ANAKINRA
     Indication: Rheumatoid arthritis
     Dates: start: 202111
  2. KINERET [Suspect]
     Active Substance: ANAKINRA
     Dates: start: 20211103
  3. KINERET [Suspect]
     Active Substance: ANAKINRA

REACTIONS (9)
  - Sepsis [Unknown]
  - Infection [Not Recovered/Not Resolved]
  - Injury associated with device [Unknown]
  - Needle issue [Unknown]
  - Urinary tract infection [Unknown]
  - Illness [Unknown]
  - COVID-19 [Unknown]
  - Product dose omission issue [Unknown]
  - Product administration error [Unknown]
